FAERS Safety Report 7274345-4 (Version None)
Quarter: 2011Q1

REPORT INFORMATION
  Report Type: 
  Country: None (occurrence: None)
  Receive Date: 20110131
  Receipt Date: 20110131
  Transmission Date: 20110831
  Serious: Yes (Life-Threatening, Hospitalization)
  Sender: FDA-Public Use
  Company Number: None

PATIENT
  Age: 39 Year
  Sex: Female
  Weight: 69.4003 kg

DRUGS (1)
  1. LISINOPRIL [Suspect]
     Indication: DIABETIC RETINOPATHY
     Dosage: 2.5 MG 1/DAY PO
     Route: 048
     Dates: start: 20110120, end: 20110120

REACTIONS (3)
  - ANGIOEDEMA [None]
  - SENSATION OF HEAVINESS [None]
  - CHEST DISCOMFORT [None]
